FAERS Safety Report 25184364 (Version 4)
Quarter: 2025Q2

REPORT INFORMATION
  Report Type: Spontaneous
  Country: DE (occurrence: DE)
  Receive Date: 20250410
  Receipt Date: 20250625
  Transmission Date: 20250717
  Serious: Yes (Other)
  Sender: THEA PHARMA INC.
  Company Number: DE-THEA-2025000846

PATIENT
  Sex: Male
  Weight: 195 kg

DRUGS (1)
  1. LATANOPROST [Suspect]
     Active Substance: LATANOPROST
     Indication: Intraocular pressure test
     Dosage: 1X DAILY IN BOTH EYES
     Route: 047
     Dates: start: 20240201, end: 20240904

REACTIONS (2)
  - Haemangioma [Unknown]
  - Nasal obstruction [Unknown]

NARRATIVE: CASE EVENT DATE: 20240501
